FAERS Safety Report 6154312-4 (Version None)
Quarter: 2009Q2

REPORT INFORMATION
  Report Type: 
  Country: None (occurrence: None)
  Receive Date: 20090414
  Receipt Date: 20090403
  Transmission Date: 20091009
  Serious: Yes (Hospitalization, Other)
  Sender: FDA-Public Use
  Company Number: US-KINGPHARMUSA00001-K200900427

PATIENT
  Sex: Female

DRUGS (7)
  1. INTAL [Suspect]
     Indication: ASTHMA
     Dosage: 8 MG, QD
     Dates: start: 20080426, end: 20080427
  2. VENTOLIN [Concomitant]
     Dosage: 0.4 MG, QID
     Dates: start: 20080426
  3. AMINOPHYLLINE [Concomitant]
     Dosage: 12 ML, QD
     Route: 042
     Dates: start: 20080426, end: 20080427
  4. SOLU-MEDROL [Concomitant]
     Dosage: 40 MG, UNK
     Route: 042
     Dates: start: 20080426, end: 20080428
  5. SINGULAIR [Concomitant]
     Dosage: 5 MG, QD
     Route: 048
     Dates: start: 20080426
  6. HOKUNALIN [Concomitant]
     Dosage: 2 MG, QD
     Dates: start: 20080426
  7. AMBROXOL [Concomitant]
     Dosage: 45 MG, UNK
     Route: 048
     Dates: start: 20080426

REACTIONS (4)
  - DYSPNOEA [None]
  - SHOCK [None]
  - THROAT TIGHTNESS [None]
  - WHEEZING [None]
